FAERS Safety Report 15679716 (Version 1)
Quarter: 2018Q4

REPORT INFORMATION
  Report Type: Spontaneous
  Country: AU (occurrence: AU)
  Receive Date: 20181203
  Receipt Date: 20181203
  Transmission Date: 20190205
  Serious: Yes (Other)
  Sender: FDA-Public Use
  Company Number: AU-AMGEN-AUSSP2018169807

PATIENT
  Age: 29 Year
  Sex: Male

DRUGS (13)
  1. TACROLIMUS. [Concomitant]
     Active Substance: TACROLIMUS
     Dosage: 3 MG, BID
  2. IRON [Concomitant]
     Active Substance: IRON
     Dosage: UNK
  3. MYCOPHENOLATE [Concomitant]
     Active Substance: MYCOPHENOLIC ACID
     Dosage: 70 MG, BID
  4. CALCIUM [Concomitant]
     Active Substance: CALCIUM
     Dosage: 1200 MG (600MG, 2), TID
  5. TRIMETHOPRIM SULFAMETHOXAZOLE [Concomitant]
     Active Substance: SULFAMETHOXAZOLE\TRIMETHOPRIM
     Dosage: 0.5 UNK (160/80), UNK
  6. CALCITRIOL. [Concomitant]
     Active Substance: CALCITRIOL
     Dosage: 0.25 MUG, BID
  7. RANITIDINE. [Concomitant]
     Active Substance: RANITIDINE
     Dosage: 150 MG, BID
  8. CEPHALEXIN. [Concomitant]
     Active Substance: CEPHALEXIN
     Dosage: 500 MG, TID
  9. ARANESP [Suspect]
     Active Substance: DARBEPOETIN ALFA
     Indication: HAEMOGLOBIN DECREASED
     Dosage: 60 MUG, 2 TIMES/WK
     Route: 065
  10. PREDNISOLONE. [Concomitant]
     Active Substance: PREDNISOLONE
     Dosage: 25 MG, (M) UNK
  11. PANADOL [Concomitant]
     Active Substance: ACETAMINOPHEN
     Dosage: UNK UNK, AS NECESSARY
  12. CHOLECALCIFEROL [Concomitant]
     Active Substance: CHOLECALCIFEROL
     Dosage: 25 MUG, (M) UNK
  13. METOPROLOL. [Concomitant]
     Active Substance: METOPROLOL
     Dosage: 50 MG, BID

REACTIONS (3)
  - Renal graft infection [Unknown]
  - Parainfluenzae virus infection [Unknown]
  - Skin infection [Not Recovered/Not Resolved]
